FAERS Safety Report 20776455 (Version 1)
Quarter: 2022Q2

REPORT INFORMATION
  Report Type: Report from Study
  Country: US (occurrence: US)
  Receive Date: 20220502
  Receipt Date: 20220502
  Transmission Date: 20220721
  Serious: Yes (Hospitalization)
  Sender: FDA-Public Use
  Company Number: US-BRISTOL-MYERS SQUIBB COMPANY-2022-023745

PATIENT
  Age: 39 Year
  Sex: Male
  Weight: 70.760 kg

DRUGS (1)
  1. REVLIMID [Suspect]
     Active Substance: LENALIDOMIDE
     Indication: Plasma cell myeloma
     Dosage: FOR 14 DAYS
     Route: 048
     Dates: start: 202108

REACTIONS (3)
  - Hepatic enzyme abnormal [Unknown]
  - Stem cell therapy [Unknown]
  - Off label use [Unknown]

NARRATIVE: CASE EVENT DATE: 20210801
